FAERS Safety Report 11046553 (Version 1)
Quarter: 2015Q2

REPORT INFORMATION
  Report Type: Spontaneous
  Country: US (occurrence: US)
  Receive Date: 20150420
  Receipt Date: 20150420
  Transmission Date: 20150821
  Serious: No
  Sender: FDA-Public Use
  Company Number: US-TEVA-537696USA

PATIENT
  Sex: Female

DRUGS (1)
  1. PRAVASTATIN [Suspect]
     Active Substance: PRAVASTATIN\PRAVASTATIN SODIUM
     Indication: CARDIOVASCULAR DISORDER

REACTIONS (3)
  - Muscular weakness [Unknown]
  - Peripheral swelling [Unknown]
  - Joint swelling [Unknown]
